FAERS Safety Report 4999914-3 (Version None)
Quarter: 2006Q2

REPORT INFORMATION
  Report Type: 
  Country: None (occurrence: None)
  Receive Date: 20060509
  Receipt Date: 20060509
  Transmission Date: 20061013
  Serious: Yes (Life-Threatening, Hospitalization, Other)
  Sender: FDA-Public Use
  Company Number: None

PATIENT
  Age: 77 Year
  Sex: Female
  Weight: 81.6475 kg

DRUGS (2)
  1. ZYPREXA [Suspect]
     Indication: DEMENTIA
     Dosage: 15 MG    DAILY    PO
     Route: 048
     Dates: start: 20060410, end: 20060419
  2. SEROQUEL [Suspect]
     Indication: DEMENTIA
     Dosage: 500 MG    DAILY   PO
     Route: 048
     Dates: start: 20060424, end: 20060508

REACTIONS (8)
  - ABNORMAL BEHAVIOUR [None]
  - APHASIA [None]
  - BLOOD GLUCOSE INCREASED [None]
  - CONSTIPATION [None]
  - DYSKINESIA [None]
  - ILL-DEFINED DISORDER [None]
  - SCREAMING [None]
  - TONGUE DISORDER [None]
